FAERS Safety Report 20936639 (Version 3)
Quarter: 2022Q3

REPORT INFORMATION
  Report Type: Other
  Country: EG (occurrence: EG)
  Receive Date: 20220609
  Receipt Date: 20220804
  Transmission Date: 20221026
  Serious: Yes (Other)
  Sender: FDA-Public Use
  Company Number: EG-002147023-NVSC2022EG127767

PATIENT
  Age: 69 Year
  Sex: Female

DRUGS (7)
  1. LUCENTIS [Suspect]
     Active Substance: RANIBIZUMAB
     Indication: Macular oedema
     Dosage: UNK (STARTED 6 YEARS AGO IN RIGHT EYE)
     Route: 050
     Dates: end: 202204
  2. LUCENTIS [Suspect]
     Active Substance: RANIBIZUMAB
     Dosage: UNK ( STARTED 1 YEAR AGO IN LEFT EYE)
     Route: 050
  3. GLICLAZIDE [Concomitant]
     Active Substance: GLICLAZIDE
     Indication: Diabetes mellitus
     Dosage: UNK, BID (TWO TAB AT THE MORNING BEFOR BREAKFAST)
     Route: 048
  4. METFORMIN [Concomitant]
     Active Substance: METFORMIN HYDROCHLORIDE
     Indication: Diabetes mellitus
     Dosage: 1 DOSAGE FORM, QD (ONE TAB AFTER LAUNCH)
  5. BRIMONIDINE [Concomitant]
     Active Substance: BRIMONIDINE TARTRATE
     Indication: Product used for unknown indication
     Dosage: UNK UNK, BID (2 TIMES DAILY FOR 3 MONTHS)
     Route: 065
  6. GATIFLOXACIN [Concomitant]
     Active Substance: GATIFLOXACIN
     Indication: Product used for unknown indication
     Dosage: UNK (STARTED AFTER EAH LUCENTIS INJECTION) (THE FIRST DAY OF INJECTION TAKEN EACH ONE HOUR , THEN 3
  7. VANCOMYCIN [Concomitant]
     Active Substance: VANCOMYCIN
     Indication: Product used for unknown indication
     Dosage: UNK, TID (AFTER EACH LUCENTIS INJECTION)

REACTIONS (5)
  - Cataract [Unknown]
  - Breast cancer [Recovering/Resolving]
  - Macular oedema [Unknown]
  - Disease progression [Unknown]
  - Blood glucose increased [Recovering/Resolving]
